FAERS Safety Report 5577979-8 (Version None)
Quarter: 2007Q4

REPORT INFORMATION
  Report Type: 
  Country: None (occurrence: None)
  Receive Date: 20071231
  Receipt Date: 20071218
  Transmission Date: 20080405
  Serious: Yes (Hospitalization)
  Sender: FDA-Public Use
  Company Number: US-ROCHE-537358

PATIENT
  Age: 85 Year
  Sex: Female

DRUGS (1)
  1. CAPECITABINE [Suspect]
     Indication: COLORECTAL CANCER
     Dosage: DOSE PROVIDED AS 6 - 500 MG AND 2 - 150 MG.
     Route: 065
     Dates: start: 20071120

REACTIONS (1)
  - INTESTINAL OBSTRUCTION [None]
